FAERS Safety Report 6879526-7 (Version None)
Quarter: 2010Q3

REPORT INFORMATION
  Report Type: 
  Country: None (occurrence: None)
  Receive Date: 20100728
  Receipt Date: 20100719
  Transmission Date: 20110219
  Serious: Yes (Life-Threatening)
  Sender: FDA-Public Use
  Company Number: BR-JNJFOC-20100706272

PATIENT
  Age: 7 Month
  Sex: Female

DRUGS (2)
  1. MYLICON [Suspect]
     Indication: FLATULENCE
     Dosage: UNSPECIFIED DOSE ALMOST NIGHTLY
     Route: 065
  2. MYLICON [Suspect]
     Indication: ABDOMINAL PAIN UPPER
     Dosage: UNSPECIFIED DOSE ALMOST NIGHTLY
     Route: 065

REACTIONS (3)
  - ACCIDENTAL OVERDOSE [None]
  - ASPHYXIA [None]
  - PRODUCT CLOSURE ISSUE [None]
